FAERS Safety Report 13964410 (Version 1)
Quarter: 2017Q3

REPORT INFORMATION
  Report Type: Spontaneous
  Country: US (occurrence: US)
  Receive Date: 20170913
  Receipt Date: 20170913
  Transmission Date: 20171128
  Serious: No
  Sender: FDA-Public Use
  Company Number: None

PATIENT

DRUGS (2)
  1. NORMAL SALINE [Suspect]
     Active Substance: SODIUM CHLORIDE
     Dosage: OTHER FREQUENCY:Q21DAYS;?
     Route: 041
  2. CISPLATIN. [Suspect]
     Active Substance: CISPLATIN
     Dosage: OTHER FREQUENCY:Q21DAYS;?
     Route: 041

REACTIONS (2)
  - Intercepted medication error [None]
  - Product contamination physical [None]

NARRATIVE: CASE EVENT DATE: 20170907
